FAERS Safety Report 18700547 (Version 1)
Quarter: 2021Q1

REPORT INFORMATION
  Report Type: Spontaneous
  Country: US (occurrence: US)
  Receive Date: 20210104
  Receipt Date: 20210104
  Transmission Date: 20210419
  Serious: No
  Sender: FDA-Public Use
  Company Number: None

PATIENT
  Age: 36 Year
  Sex: Female
  Weight: 97.98 kg

DRUGS (1)
  1. EPONOGESTREL/ETHINYL ESTRADIOL ((GENERIC) [Suspect]
     Active Substance: ETHINYL ESTRADIOL\ETONOGESTREL
     Indication: CONTRACEPTION
     Dates: start: 202001, end: 202005

REACTIONS (2)
  - Fungal infection [None]
  - Product substitution issue [None]

NARRATIVE: CASE EVENT DATE: 202001
